FAERS Safety Report 8176835-9 (Version None)
Quarter: 2012Q1

REPORT INFORMATION
  Report Type: 
  Country: None (occurrence: None)
  Receive Date: 20120301
  Receipt Date: 20120120
  Transmission Date: 20120608
  Serious: Yes (Hospitalization)
  Sender: FDA-Public Use
  Company Number: CA-JNJFOC-20110803424

PATIENT
  Sex: Female
  Weight: 53.7 kg

DRUGS (2)
  1. MULTI-VITAMINS [Concomitant]
     Route: 065
  2. REMICADE [Suspect]
     Indication: CROHN'S DISEASE
     Dosage: AROUND 2008
     Route: 042

REACTIONS (4)
  - LABOUR INDUCTION [None]
  - EATING DISORDER [None]
  - MATERNAL EXPOSURE DURING PREGNANCY [None]
  - CROHN'S DISEASE [None]
